FAERS Safety Report 8776312 (Version 2)
Quarter: 2012Q4

REPORT INFORMATION
  Report Type: 
  Country: JP (occurrence: JP)
  Receive Date: 20120910
  Receipt Date: 20120925
  Transmission Date: 20130627
  Serious: Yes (Other)
  Sender: FDA-Public Use
  Company Number: JP-BAYER-2012-093572

PATIENT
  Age: 86 Year
  Sex: Female

DRUGS (4)
  1. ACETYLSALICYLIC ACID (} 100 MG) [Suspect]
     Route: 048
  2. AMLODIPINE [Concomitant]
  3. FUROSEMIDE [Concomitant]
  4. HALOPERIDOL [Concomitant]

REACTIONS (1)
  - Colitis microscopic [Recovered/Resolved]
